FAERS Safety Report 7517693-2 (Version None)
Quarter: 2011Q2

REPORT INFORMATION
  Report Type: 
  Country: None (occurrence: None)
  Receive Date: 20110602
  Receipt Date: 20110525
  Transmission Date: 20111010
  Serious: Yes (Other)
  Sender: FDA-Public Use
  Company Number: GR-BIOGENIDEC-2011BI019194

PATIENT
  Age: 32 Year
  Sex: Female
  Weight: 56 kg

DRUGS (3)
  1. AVONEX [Suspect]
     Indication: MULTIPLE SCLEROSIS
     Dates: start: 20110427, end: 20110427
  2. MESULID [Concomitant]
     Indication: DYSMENORRHOEA
     Route: 048
  3. AVONEX [Concomitant]
     Route: 030
     Dates: start: 20080901, end: 20110420

REACTIONS (1)
  - ANAPHYLACTIC REACTION [None]
